FAERS Safety Report 12850751 (Version 2)
Quarter: 2016Q4

REPORT INFORMATION
  Report Type: Spontaneous
  Country: US (occurrence: US)
  Receive Date: 20161014
  Receipt Date: 20161125
  Transmission Date: 20170207
  Serious: Yes (Hospitalization, Other)
  Sender: FDA-Public Use
  Company Number: US-ASTRAZENECA-2016SF08556

PATIENT
  Sex: Female
  Weight: 141.5 kg

DRUGS (1)
  1. FARXIGA [Suspect]
     Active Substance: DAPAGLIFLOZIN PROPANEDIOL
     Route: 048

REACTIONS (5)
  - Acute kidney injury [Unknown]
  - Urinary tract infection [Unknown]
  - Hypotension [Recovered/Resolved]
  - Weight decreased [Unknown]
  - Vaginal infection [Unknown]
